FAERS Safety Report 7522825-6 (Version None)
Quarter: 2011Q2

REPORT INFORMATION
  Report Type: 
  Country: None (occurrence: None)
  Receive Date: 20110603
  Receipt Date: 20110601
  Transmission Date: 20111010
  Serious: Yes (Other)
  Sender: FDA-Public Use
  Company Number: JP-PFIZER INC-2011116451

PATIENT
  Age: 58 Year
  Sex: Male

DRUGS (3)
  1. DOXAZOSIN MESYLATE [Suspect]
     Indication: HYPERTENSION
     Dosage: 2 MG, 1X/DAY
     Route: 048
     Dates: start: 20070101
  2. AMLODIPINE [Suspect]
     Indication: HYPERTENSION
     Dosage: UNK
     Dates: end: 20110401
  3. BASEN [Suspect]
     Indication: DIABETES MELLITUS
     Dosage: UNK
     Dates: end: 20110301

REACTIONS (1)
  - BLOOD CREATINE PHOSPHOKINASE INCREASED [None]
